FAERS Safety Report 22339381 (Version 2)
Quarter: 2023Q2

REPORT INFORMATION
  Report Type: Report from Study
  Country: US (occurrence: None)
  Receive Date: 20230518
  Receipt Date: 20230523
  Transmission Date: 20230721
  Serious: Yes (Hospitalization)
  Sender: FDA-Public Use
  Company Number: US-ROCHE-3349824

PATIENT
  Age: 84 Year
  Sex: Female

DRUGS (16)
  1. FARICIMAB [Suspect]
     Active Substance: FARICIMAB
     Indication: Diabetic retinal oedema
     Dosage: ON 12/APR/2023 AT 2:00 PM RECEIVED MOST RECENT DOSE OF STUDY DRUG (6MG) PRIOR TO AE/SAE
     Route: 050
     Dates: start: 20210702
  2. RANIBIZUMAB [Suspect]
     Active Substance: RANIBIZUMAB
     Indication: Diabetic retinal oedema
     Dosage: AS PER PROTOCOL
     Route: 050
     Dates: start: 20210702
  3. VITAMIN B12 [Concomitant]
     Active Substance: CYANOCOBALAMIN
     Indication: Neuropathy peripheral
     Route: 048
     Dates: start: 1990
  4. REPAGLINIDE [Concomitant]
     Active Substance: REPAGLINIDE
     Indication: Type 2 diabetes mellitus
     Route: 048
     Dates: start: 20190815
  5. ALOGLIPTIN [Concomitant]
     Active Substance: ALOGLIPTIN
     Indication: Type 2 diabetes mellitus
     Route: 048
     Dates: start: 20190815
  6. NAPROXEN [Concomitant]
     Active Substance: NAPROXEN
     Route: 048
     Dates: start: 20190915
  7. LOSARTAN [Concomitant]
     Active Substance: LOSARTAN
     Indication: Hypertension
     Route: 048
     Dates: start: 20191010
  8. MIRALAX [Concomitant]
     Active Substance: POLYETHYLENE GLYCOL 3350
     Indication: Constipation
     Route: 048
     Dates: start: 20191010
  9. TYLENOL [Concomitant]
     Active Substance: ACETAMINOPHEN
     Indication: Back pain
     Route: 048
     Dates: start: 20191010
  10. DOCUSATE SODIUM [Concomitant]
     Active Substance: DOCUSATE SODIUM
     Indication: Constipation
     Route: 048
     Dates: start: 20191010
  11. CALCIUM [Concomitant]
     Active Substance: CALCIUM
     Route: 048
     Dates: start: 20191210
  12. JANUVIA [Concomitant]
     Active Substance: SITAGLIPTIN PHOSPHATE
     Indication: Type 2 diabetes mellitus
     Route: 048
     Dates: start: 20210608
  13. HYDROCHLOROTHIAZIDE [Concomitant]
     Active Substance: HYDROCHLOROTHIAZIDE
     Indication: Oedema peripheral
     Route: 048
     Dates: start: 20220407
  14. MINERALS\VITAMINS [Concomitant]
     Active Substance: MINERALS\VITAMINS
     Indication: Dry age-related macular degeneration
     Route: 047
     Dates: start: 20210506
  15. MIDAZOLAM [Concomitant]
     Active Substance: MIDAZOLAM
     Indication: Colonoscopy
     Route: 042
     Dates: start: 20230403, end: 20230403
  16. MEPERIDINE [Concomitant]
     Active Substance: MEPERIDINE
     Indication: Colonoscopy
     Route: 042
     Dates: start: 20230403, end: 20230403

REACTIONS (1)
  - Norovirus infection [Recovered/Resolved]

NARRATIVE: CASE EVENT DATE: 20230425
